FAERS Safety Report 6239556-5 (Version None)
Quarter: 2009Q2

REPORT INFORMATION
  Report Type: 
  Country: None (occurrence: None)
  Receive Date: 20090622
  Receipt Date: 20090615
  Transmission Date: 20091009
  Serious: Yes (Other)
  Sender: FDA-Public Use
  Company Number: US-ASTRAZENECA-2009UW15165

PATIENT
  Age: 52 Year
  Sex: Female
  Weight: 79.4 kg

DRUGS (14)
  1. CRESTOR [Suspect]
     Route: 048
  2. CRESTOR [Suspect]
     Route: 048
  3. GABAPENTIN [Concomitant]
     Indication: NEUROPATHY PERIPHERAL
  4. HYDROCHLOROTHIAZDE TAB [Concomitant]
     Indication: HYPERTENSION
  5. CYMBALTA [Concomitant]
     Indication: DEPRESSION
  6. LOVAZA [Concomitant]
     Indication: CARDIAC DISORDER
  7. METOPROLOL SUCCINATE [Concomitant]
     Indication: HYPERTENSION
  8. DARVOCET [Concomitant]
     Indication: PAIN
  9. OMEPRAZOLE [Concomitant]
     Indication: GASTROOESOPHAGEAL REFLUX DISEASE
  10. NORVASC [Concomitant]
     Indication: HYPERTENSION
  11. TRAMADOL HCL [Concomitant]
     Indication: PAIN
  12. TIZANIDINE [Concomitant]
     Indication: MUSCLE RELAXANT THERAPY
  13. LISINOPRIL [Concomitant]
     Indication: HYPERTENSION
  14. ASPIRIN [Concomitant]
     Indication: CARDIAC DISORDER

REACTIONS (2)
  - HEADACHE [None]
  - VASCULITIS [None]
